FAERS Safety Report 17843204 (Version 1)
Quarter: 2020Q2

REPORT INFORMATION
  Report Type: Spontaneous
  Country: TW (occurrence: TW)
  Receive Date: 20200530
  Receipt Date: 20200530
  Transmission Date: 20200714
  Serious: Yes (Hospitalization)
  Sender: FDA-Public Use
  Company Number: TW-MICRO LABS LIMITED-ML2020-01651

PATIENT
  Age: 42 Year
  Sex: Male

DRUGS (3)
  1. BUPROPION. [Suspect]
     Active Substance: BUPROPION
     Dosage: INGESTION OF 45 TABLETS OF 150 MG
     Route: 048
  2. AMITRIPTYLINE [Suspect]
     Active Substance: AMITRIPTYLINE
     Dosage: INGESTION OF 30 TABLETS OF 25 MG
     Route: 048
  3. CLONAZEPAM. [Suspect]
     Active Substance: CLONAZEPAM
     Dosage: INGESTION OF OVER 400 TABLETS OF 2 MG
     Route: 048

REACTIONS (10)
  - Intentional overdose [Recovered/Resolved]
  - Pyrexia [Recovered/Resolved]
  - Ventricular tachycardia [Recovered/Resolved]
  - Altered state of consciousness [Recovered/Resolved]
  - Poisoning deliberate [Recovered/Resolved]
  - Conduction disorder [Recovered/Resolved]
  - Hypotension [Recovered/Resolved]
  - Electrocardiogram QT prolonged [Recovered/Resolved]
  - QRS axis abnormal [Recovered/Resolved]
  - Seizure [Recovered/Resolved]
